FAERS Safety Report 25622594 (Version 1)
Quarter: 2025Q3

REPORT INFORMATION
  Report Type: Spontaneous
  Country: US (occurrence: US)
  Receive Date: 20250730
  Receipt Date: 20250730
  Transmission Date: 20251021
  Serious: No
  Sender: TORRENT PHARMA INC.
  Company Number: US-TORRENT-00014450

PATIENT
  Sex: Male

DRUGS (1)
  1. VENXXIVA [Suspect]
     Active Substance: TIOPRONIN
     Indication: Product used for unknown indication
     Route: 065

REACTIONS (1)
  - Hypersomnia [Recovered/Resolved]
